FAERS Safety Report 7044797-3 (Version None)
Quarter: 2010Q4

REPORT INFORMATION
  Report Type: 
  Country: None (occurrence: None)
  Receive Date: 20101014
  Receipt Date: 20100909
  Transmission Date: 20110411
  Serious: Yes (Death, Other)
  Sender: FDA-Public Use
  Company Number: US-BAXTER-2009BH006804

PATIENT
  Age: 71 Year
  Sex: Female
  Weight: 63 kg

DRUGS (40)
  1. HEPARIN SODIUM INJECTION [Suspect]
     Indication: THROMBOSIS PROPHYLAXIS
     Route: 065
     Dates: start: 20070717, end: 20070717
  2. HEPARIN SODIUM INJECTION [Suspect]
     Indication: ARTERIOVENOUS FISTULA OPERATION
     Route: 065
     Dates: start: 20070717, end: 20070717
  3. HEPARIN SODIUM INJECTION [Suspect]
     Indication: INTRAVENOUS CATHETER MANAGEMENT
     Route: 065
     Dates: start: 20070717, end: 20070717
  4. HEPARIN SODIUM INJECTION [Suspect]
     Route: 042
     Dates: start: 20071002
  5. HEPARIN SODIUM INJECTION [Suspect]
     Route: 042
     Dates: start: 20071002
  6. HEPARIN SODIUM INJECTION [Suspect]
     Route: 042
     Dates: start: 20071002
  7. HEPARIN SODIUM INJECTION [Suspect]
     Route: 058
     Dates: start: 20071009, end: 20071019
  8. HEPARIN SODIUM INJECTION [Suspect]
     Route: 058
     Dates: start: 20071009, end: 20071019
  9. HEPARIN SODIUM INJECTION [Suspect]
     Route: 058
     Dates: start: 20071009, end: 20071019
  10. HEPARIN SODIUM INJECTION [Suspect]
     Route: 010
     Dates: start: 20070717, end: 20071201
  11. HEPARIN SODIUM INJECTION [Suspect]
     Route: 010
     Dates: start: 20070717, end: 20071201
  12. HEPARIN SODIUM INJECTION [Suspect]
     Route: 010
     Dates: start: 20070717, end: 20071201
  13. HEPARIN SODIUM INJECTION [Suspect]
     Route: 065
     Dates: start: 20071110, end: 20071201
  14. HEPARIN SODIUM INJECTION [Suspect]
     Route: 065
     Dates: start: 20071110, end: 20071201
  15. HEPARIN SODIUM INJECTION [Suspect]
     Route: 065
     Dates: start: 20071110, end: 20071201
  16. HEPARIN SODIUM INJECTION [Suspect]
     Route: 065
     Dates: start: 20071119, end: 20071121
  17. HEPARIN SODIUM INJECTION [Suspect]
     Route: 065
     Dates: start: 20071119, end: 20071121
  18. HEPARIN SODIUM INJECTION [Suspect]
     Route: 065
     Dates: start: 20071119, end: 20071121
  19. HEPARIN SODIUM INJECTION [Suspect]
     Route: 065
     Dates: start: 20071114, end: 20071129
  20. HEPARIN SODIUM INJECTION [Suspect]
     Route: 065
     Dates: start: 20071114, end: 20071129
  21. HEPARIN SODIUM INJECTION [Suspect]
     Route: 065
     Dates: start: 20071114, end: 20071129
  22. HEPARIN SODIUM INJECTION [Suspect]
     Route: 065
     Dates: start: 20071121, end: 20071125
  23. HEPARIN SODIUM INJECTION [Suspect]
     Route: 065
     Dates: start: 20071121, end: 20071125
  24. HEPARIN SODIUM INJECTION [Suspect]
     Route: 065
     Dates: start: 20071121, end: 20071125
  25. GLUCOTROL XL [Concomitant]
     Indication: PRODUCT USED FOR UNKNOWN INDICATION
     Route: 065
  26. NAMENDA [Concomitant]
     Indication: PRODUCT USED FOR UNKNOWN INDICATION
     Route: 065
  27. HECTOROL [Concomitant]
     Indication: PRODUCT USED FOR UNKNOWN INDICATION
     Route: 065
  28. AMLODIPINE [Concomitant]
     Indication: PRODUCT USED FOR UNKNOWN INDICATION
     Route: 065
  29. DEMADEX [Concomitant]
     Indication: PRODUCT USED FOR UNKNOWN INDICATION
     Route: 065
  30. CLONIDINE [Concomitant]
     Indication: PRODUCT USED FOR UNKNOWN INDICATION
     Route: 065
  31. MINITRAN [Concomitant]
     Indication: PRODUCT USED FOR UNKNOWN INDICATION
     Route: 061
  32. PRILOSEC [Concomitant]
     Indication: PRODUCT USED FOR UNKNOWN INDICATION
     Route: 065
  33. RENAGEL [Concomitant]
     Indication: PRODUCT USED FOR UNKNOWN INDICATION
     Route: 065
  34. PENTOXIFYLLINE [Concomitant]
     Indication: PRODUCT USED FOR UNKNOWN INDICATION
     Route: 065
  35. ZETIA [Concomitant]
     Indication: PRODUCT USED FOR UNKNOWN INDICATION
     Route: 065
  36. LABETALOL HCL [Concomitant]
     Indication: PRODUCT USED FOR UNKNOWN INDICATION
     Route: 065
  37. ASPIRIN [Concomitant]
     Indication: PRODUCT USED FOR UNKNOWN INDICATION
     Route: 065
  38. ARICEPT [Concomitant]
     Indication: PRODUCT USED FOR UNKNOWN INDICATION
     Route: 065
  39. CELEXA [Concomitant]
     Indication: PRODUCT USED FOR UNKNOWN INDICATION
     Route: 065
  40. POTASSIUM [Concomitant]
     Indication: PRODUCT USED FOR UNKNOWN INDICATION
     Route: 065

REACTIONS (12)
  - ABDOMINAL ADHESIONS [None]
  - BACTERIAL SEPSIS [None]
  - CLOSTRIDIAL INFECTION [None]
  - ENTEROCOCCAL INFECTION [None]
  - HYPOTENSION [None]
  - INTESTINAL OBSTRUCTION [None]
  - LUNG INFILTRATION [None]
  - PLEURAL EFFUSION [None]
  - PNEUMONIA ASPIRATION [None]
  - RESPIRATORY FAILURE [None]
  - SEPSIS [None]
  - VOMITING [None]
